FAERS Safety Report 6637126-8 (Version None)
Quarter: 2010Q1

REPORT INFORMATION
  Report Type: 
  Country: None (occurrence: None)
  Receive Date: 20100316
  Receipt Date: 20100119
  Transmission Date: 20100710
  Serious: No
  Sender: FDA-Public Use
  Company Number: US-ABBOTT-10P-163-0620987-00

PATIENT
  Sex: Male
  Weight: 91.708 kg

DRUGS (3)
  1. TRILIPIX [Suspect]
     Indication: BLOOD TRIGLYCERIDES INCREASED
     Route: 048
     Dates: start: 20091001
  2. CENTRUM MULTIVITAMIN [Concomitant]
     Indication: MEDICAL DIET
     Route: 048
  3. ASPIRIN [Concomitant]
     Indication: CARDIAC DISORDER
     Route: 048

REACTIONS (1)
  - ERECTILE DYSFUNCTION [None]
